FAERS Safety Report 8764075 (Version 2)
Quarter: 2012Q4

REPORT INFORMATION
  Report Type: Report from Study
  Country: US (occurrence: US)
  Receive Date: 20120831
  Receipt Date: 20121126
  Transmission Date: 20130627
  Serious: Yes (Hospitalization)
  Sender: FDA-Public Use
  Company Number: US-UCBSA-059092

PATIENT
  Age: 38 Year
  Sex: Female
  Weight: 126.4 kg

DRUGS (6)
  1. CERTOLIZUMAB PEGOL [Suspect]
     Indication: PSORIATIC ARTHROPATHY
     Dosage: NO. OF DOSES : 27
     Route: 058
     Dates: start: 20101112
  2. METHOTREXATE [Concomitant]
     Indication: PSORIATIC ARTHROPATHY
     Route: 058
     Dates: start: 20100921
  3. LODINE [Concomitant]
     Indication: PSORIATIC ARTHROPATHY
     Route: 048
     Dates: start: 20100830
  4. FOLIC ACID [Concomitant]
     Indication: PROPHYLAXIS
     Route: 048
     Dates: start: 20100824
  5. VITAMIN D [Concomitant]
     Indication: SUPPLEMENTATION THERAPY
     Route: 048
     Dates: start: 20101001
  6. MELATONIN [Concomitant]
     Indication: SLEEP DISORDER
     Dosage: 1 TABLET
     Route: 048
     Dates: start: 2008

REACTIONS (1)
  - Device related infection [Recovered/Resolved]
